FAERS Safety Report 18221234 (Version 1)
Quarter: 2020Q3

REPORT INFORMATION
  Report Type: Spontaneous
  Country: US (occurrence: US)
  Receive Date: 20200901
  Receipt Date: 20200901
  Transmission Date: 20201103
  Serious: Yes (Death)
  Sender: FDA-Public Use
  Company Number: None

PATIENT
  Age: 60 Year
  Sex: Male
  Weight: 129.73 kg

DRUGS (1)
  1. REMDESIVIR. [Suspect]
     Active Substance: REMDESIVIR

REACTIONS (5)
  - Oxygen saturation decreased [None]
  - Acute kidney injury [None]
  - Shock [None]
  - Condition aggravated [None]
  - Haemodialysis [None]

NARRATIVE: CASE EVENT DATE: 20200827
